FAERS Safety Report 19862544 (Version 1)
Quarter: 2021Q3

REPORT INFORMATION
  Report Type: Spontaneous
  Country: US (occurrence: US)
  Receive Date: 20210921
  Receipt Date: 20210921
  Transmission Date: 20211014
  Serious: No
  Sender: FDA-Public Use
  Company Number: US-PFIZER INC-2021634612

PATIENT
  Age: 69 Year
  Sex: Female
  Weight: 75.3 kg

DRUGS (2)
  1. BISOPROLOL [BISOPROLOL FUMARATE] [Concomitant]
     Active Substance: BISOPROLOL FUMARATE
  2. TIKOSYN [Suspect]
     Active Substance: DOFETILIDE
     Indication: ATRIAL FIBRILLATION
     Dosage: 500 UG, DAILY
     Route: 048

REACTIONS (3)
  - Vision blurred [Unknown]
  - Dizziness [Unknown]
  - Diplopia [Unknown]
